FAERS Safety Report 25605564 (Version 1)
Quarter: 2025Q3

REPORT INFORMATION
  Report Type: Spontaneous
  Country: US (occurrence: None)
  Receive Date: 20250725
  Receipt Date: 20250725
  Transmission Date: 20251021
  Serious: Yes (Hospitalization)
  Sender: FDA-CTU
  Company Number: None

PATIENT
  Age: 73 Year
  Sex: Female
  Weight: 92 kg

DRUGS (2)
  1. CARBOPLATIN [Suspect]
     Active Substance: CARBOPLATIN
     Dates: end: 20250707
  2. TAXOL [Suspect]
     Active Substance: PACLITAXEL
     Dates: end: 20250424

REACTIONS (12)
  - Vaginal haemorrhage [None]
  - Rectal haemorrhage [None]
  - Asthenia [None]
  - Hypotension [None]
  - Anaemia [None]
  - Thrombocytopenia [None]
  - Diverticulum intestinal [None]
  - Haemorrhoids [None]
  - Haemorrhoids [None]
  - Hypertrophic anal papilla [None]
  - Proteus test positive [None]
  - Escherichia test positive [None]

NARRATIVE: CASE EVENT DATE: 20250714
